FAERS Safety Report 17062475 (Version 1)
Quarter: 2019Q4

REPORT INFORMATION
  Report Type: Other
  Country: DE (occurrence: DE)
  Receive Date: 20191122
  Receipt Date: 20191122
  Transmission Date: 20200122
  Serious: Yes (Congenital Anomaly, Other)
  Sender: FDA-Public Use
  Company Number: DE-APOTEX-2019AP024962

PATIENT
  Sex: Male

DRUGS (4)
  1. PAROXETINE. [Suspect]
     Active Substance: PAROXETINE
     Indication: POST-TRAUMATIC STRESS DISORDER
     Dosage: 30 MG, QD
     Route: 064
     Dates: start: 20180922
  2. PAROXETINE. [Suspect]
     Active Substance: PAROXETINE
     Dosage: 20 MG, QD AT GW 8
     Route: 064
     Dates: end: 20190616
  3. FLUANXOL                           /00109702/ [Concomitant]
     Active Substance: FLUPENTIXOL
     Indication: POST-TRAUMATIC STRESS DISORDER
     Dosage: 0.5 MG, QD
     Route: 064
     Dates: start: 20180922, end: 20181103
  4. LACHGAS [Concomitant]
     Indication: LABOUR PAIN
     Dosage: UNK
     Route: 064
     Dates: start: 20190616, end: 20190616

REACTIONS (4)
  - Atrial septal defect [Unknown]
  - Congenital naevus [Not Recovered/Not Resolved]
  - Pulmonary artery stenosis [Unknown]
  - Foetal exposure during pregnancy [Unknown]

NARRATIVE: CASE EVENT DATE: 2018
